APPROVED DRUG PRODUCT: DEXTROAMPHETAMINE SULFATE
Active Ingredient: DEXTROAMPHETAMINE SULFATE
Strength: 5MG
Dosage Form/Route: TABLET;ORAL
Application: A203548 | Product #001 | TE Code: AA
Applicant: AVANTHI INC
Approved: Nov 23, 2015 | RLD: No | RS: No | Type: RX